FAERS Safety Report 9714908 (Version 1)
Quarter: 2013Q4

REPORT INFORMATION
  Report Type: Spontaneous
  Country: AT (occurrence: None)
  Receive Date: 20131125
  Receipt Date: 20131125
  Transmission Date: 20140711
  Serious: Yes (Life-Threatening, Hospitalization)
  Sender: FDA-Public Use
  Company Number: SYM-2013-12855

PATIENT
  Age: 75 Year
  Sex: Female
  Weight: 76.2 kg

DRUGS (4)
  1. TRETINOIN [Suspect]
     Indication: ACUTE MYELOID LEUKAEMIA
     Dates: start: 20130204
  2. IDARUBICIN [Suspect]
     Indication: ACUTE MYELOID LEUKAEMIA
     Dates: start: 20130130
  3. CYTARABINE (CYTARABINE) (CYTARABINE) [Suspect]
     Indication: ACUTE MYELOID LEUKAEMIA
     Dates: start: 20130130
  4. PEGFILGRASTIM (PERGLILGRASTIM) (PEGFILGRASTIM) [Concomitant]

REACTIONS (7)
  - Sepsis [None]
  - Bacterial infection [None]
  - Staphylococcus test positive [None]
  - Candida infection [None]
  - Dyspnoea [None]
  - General physical health deterioration [None]
  - Pneumonia fungal [None]
